FAERS Safety Report 18472204 (Version 2)
Quarter: 2020Q4

REPORT INFORMATION
  Report Type: Report from Study
  Country: ES (occurrence: ES)
  Receive Date: 20201106
  Receipt Date: 20201212
  Transmission Date: 20210114
  Serious: Yes (Death)
  Sender: FDA-Public Use
  Company Number: ES-ROCHE-2708014

PATIENT
  Age: 59 Year
  Sex: Female

DRUGS (6)
  1. TOCILIZUMAB. [Suspect]
     Active Substance: TOCILIZUMAB
     Indication: COVID-19 PNEUMONIA
     Route: 042
     Dates: start: 20201013
  2. DEXAMETHASONE. [Concomitant]
     Active Substance: DEXAMETHASONE
     Indication: COVID-19
     Route: 042
     Dates: start: 20201014, end: 20201021
  3. BROMAZEPAM [Concomitant]
     Active Substance: BROMAZEPAM
     Indication: COVID-19
     Route: 042
     Dates: start: 20201015, end: 20201021
  4. TENOFOVIR [Concomitant]
     Active Substance: TENOFOVIR
     Indication: COVID-19
     Dates: start: 20201013, end: 20201021
  5. CEFTRIAXONE. [Concomitant]
     Active Substance: CEFTRIAXONE
     Indication: COVID-19
     Route: 042
     Dates: start: 20201011, end: 20201021
  6. MORPHINE [Concomitant]
     Active Substance: MORPHINE
     Indication: COVID-19
     Route: 042
     Dates: start: 20201011, end: 20201021

REACTIONS (1)
  - Respiratory failure [Fatal]

NARRATIVE: CASE EVENT DATE: 20201013
